FAERS Safety Report 9068213 (Version 2)
Quarter: 2013Q1

REPORT INFORMATION
  Report Type: Spontaneous
  Country: PH (occurrence: PH)
  Receive Date: 20130215
  Receipt Date: 20130222
  Transmission Date: 20140127
  Serious: Yes (Hospitalization)
  Sender: FDA-Public Use
  Company Number: PH-MERCK-1302PHL006054

PATIENT
  Age: 51 Year
  Sex: Female

DRUGS (1)
  1. JANUVIA [Suspect]
     Dosage: 1 DF, BID
     Route: 048
     Dates: start: 201211, end: 2013

REACTIONS (1)
  - Blood glucose increased [Unknown]
